FAERS Safety Report 7247773-0 (Version None)
Quarter: 2011Q1

REPORT INFORMATION
  Report Type: 
  Country: None (occurrence: None)
  Receive Date: 20110127
  Receipt Date: 20110120
  Transmission Date: 20110831
  Serious: Yes (Hospitalization)
  Sender: FDA-Public Use
  Company Number: JP-GENZYME-FABR-1001590

PATIENT
  Sex: Male
  Weight: 67 kg

DRUGS (11)
  1. FABRAZYME [Suspect]
     Dosage: 70 MG, Q4W
     Route: 042
     Dates: start: 20091112, end: 20100623
  2. METOCLOPRAMIDE [Concomitant]
     Indication: FABRY'S DISEASE
     Dosage: UNK
  3. CLOSTRIDIUM BUTYRICUM [Concomitant]
     Indication: FABRY'S DISEASE
     Dosage: UNK
  4. BUCLADESINE SODIUM [Concomitant]
     Indication: FABRY'S DISEASE
     Dosage: UNK
     Dates: start: 20100805
  5. BENZALKONIUM CHLORIDE [Concomitant]
     Indication: FABRY'S DISEASE
     Dosage: UNK
     Dates: start: 20100805
  6. TEPRENONE [Concomitant]
     Indication: FABRY'S DISEASE
     Dosage: UNK
  7. SULFADIAZINE [Concomitant]
     Indication: FABRY'S DISEASE
     Dosage: UNK
  8. LIDOCAINE HYDROCHLORIDE [Concomitant]
     Indication: FABRY'S DISEASE
     Dosage: UNK
  9. FABRAZYME [Suspect]
     Indication: FABRY'S DISEASE
     Dosage: 35 MG, Q2W
     Dates: start: 20100707
  10. LOXOPROFEN SODIUM [Concomitant]
     Indication: FABRY'S DISEASE
     Dosage: UNK
  11. FABRAZYME [Suspect]
     Dosage: 1.0 MG/KG, Q2W
     Route: 042
     Dates: start: 20060808, end: 20091029

REACTIONS (1)
  - DEAFNESS [None]
